FAERS Safety Report 12820835 (Version 3)
Quarter: 2016Q4

REPORT INFORMATION
  Report Type: Report from Study
  Country: PL (occurrence: PL)
  Receive Date: 20161007
  Receipt Date: 20161024
  Transmission Date: 20170207
  Serious: Yes (Hospitalization)
  Sender: FDA-Public Use
  Company Number: PL-AMGEN-POLCT2016134404

PATIENT
  Age: 52 Year
  Sex: Male
  Weight: 78 kg

DRUGS (6)
  1. ATORVASTATIN [Suspect]
     Active Substance: ATORVASTATIN
     Indication: DYSLIPIDAEMIA
     Dosage: 40 MG, UNK
     Route: 065
     Dates: start: 201001
  2. PREFILLED AUTOINJECTOR/PEN [Suspect]
     Active Substance: DEVICE
     Indication: DYSLIPIDAEMIA
     Dosage: UNK
     Route: 058
     Dates: start: 20130528
  3. RAMIPRIL. [Concomitant]
     Active Substance: RAMIPRIL
     Dosage: UNK
     Dates: start: 2010
  4. ASPIRIN. [Concomitant]
     Active Substance: ASPIRIN
     Dosage: UNK
     Dates: start: 2010
  5. AMG 145 [Suspect]
     Active Substance: EVOLOCUMAB
     Indication: DYSLIPIDAEMIA
     Dosage: 140 MG, Q2WK
     Route: 058
     Dates: start: 20130528
  6. UROSEPT [Concomitant]
     Indication: URINARY TRACT INFECTION
     Dosage: UNK
     Dates: start: 20160629, end: 20160703

REACTIONS (1)
  - Henoch-Schonlein purpura [Recovered/Resolved]

NARRATIVE: CASE EVENT DATE: 20160701
